FAERS Safety Report 17509778 (Version 8)
Quarter: 2021Q1

REPORT INFORMATION
  Report Type: Spontaneous
  Country: US (occurrence: US)
  Receive Date: 20200306
  Receipt Date: 20210129
  Transmission Date: 20210419
  Serious: Yes (Hospitalization, Other)
  Sender: FDA-Public Use
  Company Number: US-PFIZER INC-2020041246

PATIENT
  Age: 67 Year
  Sex: Female

DRUGS (7)
  1. METHOTREXATE. [Concomitant]
     Active Substance: METHOTREXATE
     Dosage: UNK
  2. FOLIC ACID. [Concomitant]
     Active Substance: FOLIC ACID
     Dosage: UNK
  3. VICODIN [Suspect]
     Active Substance: ACETAMINOPHEN\HYDROCODONE BITARTRATE
     Dosage: UNK
  4. HUMIRA [Concomitant]
     Active Substance: ADALIMUMAB
     Dosage: UNK
  5. PREDNISONE. [Concomitant]
     Active Substance: PREDNISONE
     Dosage: UNK
  6. XELJANZ [Suspect]
     Active Substance: TOFACITINIB CITRATE
     Indication: RHEUMATOID ARTHRITIS
     Dosage: 5 MG, 2X/DAY
     Route: 048
     Dates: start: 201911
  7. FERROUS SULFATE. [Concomitant]
     Active Substance: FERROUS SULFATE
     Dosage: UNK

REACTIONS (25)
  - Infection [Unknown]
  - Anaemia [Recovered/Resolved]
  - Arthralgia [Unknown]
  - Polyp [Unknown]
  - Feeling hot [Unknown]
  - Influenza [Unknown]
  - Sputum discoloured [Unknown]
  - Malaise [Not Recovered/Not Resolved]
  - Therapeutic product effect incomplete [Unknown]
  - Productive cough [Unknown]
  - Product dose omission in error [Unknown]
  - Joint swelling [Unknown]
  - Musculoskeletal stiffness [Unknown]
  - Joint stiffness [Unknown]
  - Product dose omission issue [Unknown]
  - Neck pain [Unknown]
  - Pain in extremity [Unknown]
  - Pneumonia [Unknown]
  - Condition aggravated [Unknown]
  - Finger deformity [Unknown]
  - Feeling cold [Unknown]
  - Decreased appetite [Unknown]
  - Dyspnoea [Unknown]
  - Nerve compression [Unknown]
  - Fatigue [Unknown]

NARRATIVE: CASE EVENT DATE: 2020
